FAERS Safety Report 18904628 (Version 1)
Quarter: 2021Q1

REPORT INFORMATION
  Report Type: Spontaneous
  Country: US (occurrence: US)
  Receive Date: 20210217
  Receipt Date: 20210217
  Transmission Date: 20210420
  Serious: Yes (Life-Threatening, Congenital Anomaly, Other)
  Sender: FDA-Public Use
  Company Number: US-CELLTRION INC.-2021US001980

PATIENT

DRUGS (3)
  1. RITUXIMAB (UNKNOWN) [Suspect]
     Active Substance: RITUXIMAB
     Route: 064
  2. OXYCODONE [Suspect]
     Active Substance: OXYCODONE
     Route: 064
  3. SERTRALINE [Suspect]
     Active Substance: SERTRALINE HYDROCHLORIDE
     Route: 064

REACTIONS (16)
  - Meconium aspiration syndrome [Unknown]
  - Hypotonia neonatal [Unknown]
  - Hypertension neonatal [Unknown]
  - Congenital hair disorder [Unknown]
  - Resuscitation [Unknown]
  - Congenital nose malformation [Unknown]
  - Benign congenital hypotonia [Unknown]
  - Jaundice neonatal [Unknown]
  - Neonatal respiratory acidosis [Unknown]
  - Micrognathia [Unknown]
  - Cyanosis neonatal [Unknown]
  - Clinodactyly [Unknown]
  - Foetal exposure during pregnancy [Unknown]
  - Congenital oral malformation [Unknown]
  - Intensive care [Unknown]
  - Thrombocytopenia neonatal [Unknown]
